FAERS Safety Report 4283127-7 (Version None)
Quarter: 2004Q1

REPORT INFORMATION
  Report Type: 
  Country: None (occurrence: None)
  Receive Date: 20040122
  Receipt Date: 20040106
  Transmission Date: 20041129
  Serious: Yes (Hospitalization, Other)
  Sender: FDA-Public Use
  Company Number: 2004SA000001

PATIENT
  Age: 50 Year
  Sex: Male
  Weight: 65 kg

DRUGS (8)
  1. THYMOGLOBULIN [Suspect]
     Indication: APLASTIC ANAEMIA
     Dosage: 200 MG; ONCE; INTRAVENOUS
     Route: 042
     Dates: start: 20040104, end: 20040104
  2. CORTANCYL [Concomitant]
  3. NEORAL [Concomitant]
  4. CYCLOPHOSPHAMIDE [Concomitant]
  5. FLUDARABINE PHOSPHATE [Concomitant]
  6. METHYLPREDNISOLONE [Concomitant]
  7. POLARAMINE [Concomitant]
  8. PARACETAMOL [Concomitant]

REACTIONS (10)
  - CARDIAC OUTPUT DECREASED [None]
  - CHILLS [None]
  - COAGULATION FACTOR V LEVEL DECREASED [None]
  - DISSEMINATED INTRAVASCULAR COAGULATION [None]
  - GAMMA-GLUTAMYLTRANSFERASE INCREASED [None]
  - HEPATIC ENZYME INCREASED [None]
  - ISCHAEMIC HEPATITIS [None]
  - MYALGIA [None]
  - PROTHROMBIN TIME RATIO DECREASED [None]
  - PYREXIA [None]
